FAERS Safety Report 4652233-7 (Version None)
Quarter: 2005Q2

REPORT INFORMATION
  Report Type: 
  Country: None (occurrence: None)
  Receive Date: 20050502
  Receipt Date: 20050419
  Transmission Date: 20051028
  Serious: Yes (Hospitalization)
  Sender: FDA-Public Use
  Company Number: 2005062207

PATIENT
  Sex: Female

DRUGS (1)
  1. DOSTINEX [Suspect]
     Indication: HYPERPROLACTINAEMIA
     Dosage: ORAL
     Route: 048
     Dates: start: 20050120, end: 20050131

REACTIONS (4)
  - ABDOMINAL PAIN [None]
  - ANAL HAEMORRHAGE [None]
  - COLITIS ISCHAEMIC [None]
  - VASOSPASM [None]
